FAERS Safety Report 25941125 (Version 2)
Quarter: 2025Q4

REPORT INFORMATION
  Report Type: Spontaneous
  Country: EU (occurrence: EU)
  Receive Date: 20251020
  Receipt Date: 20251027
  Transmission Date: 20260117
  Serious: Yes (Other)
  Sender: SAMSUNG BIOEPIS
  Company Number: EU-SAMSUNG BIOEPIS-SB-2025-34666

PATIENT
  Age: 26 Year
  Sex: Female

DRUGS (3)
  1. ADALIMUMAB [Suspect]
     Active Substance: ADALIMUMAB
     Indication: Hidradenitis
     Dosage: LOADING DOSE 160 MG WEEK 0;
  2. ADALIMUMAB [Suspect]
     Active Substance: ADALIMUMAB
     Dosage: 80 MG AT WEEK 2;
  3. ADALIMUMAB [Suspect]
     Active Substance: ADALIMUMAB
     Dosage: MAINTENANCE REGIMEN 40 MG EVERY OTHER WEEK;

REACTIONS (2)
  - Desmoid tumour [Unknown]
  - Off label use [Unknown]
